FAERS Safety Report 22628431 (Version 3)
Quarter: 2023Q4

REPORT INFORMATION
  Report Type: Spontaneous
  Country: JP (occurrence: JP)
  Receive Date: 20230622
  Receipt Date: 20231114
  Transmission Date: 20240109
  Serious: Yes (Death, Hospitalization, Other)
  Sender: FDA-Public Use
  Company Number: JP-BAYER-2023A082422

PATIENT
  Age: 74 Year
  Sex: Male

DRUGS (3)
  1. XOFIGO [Suspect]
     Active Substance: RADIUM RA-223 DICHLORIDE
     Indication: Metastases to bone
     Dosage: 6 TIMES
     Dates: start: 20201221, end: 20210513
  2. XOFIGO [Suspect]
     Active Substance: RADIUM RA-223 DICHLORIDE
     Indication: Hormone-refractory prostate cancer
  3. XOFIGO [Suspect]
     Active Substance: RADIUM RA-223 DICHLORIDE
     Indication: Metastasis

REACTIONS (12)
  - Hormone-refractory prostate cancer [Fatal]
  - Cachexia [Fatal]
  - Blood pressure decreased [Fatal]
  - Malignant pleural effusion [None]
  - Anaemia [Recovering/Resolving]
  - Dyspnoea [None]
  - Musculoskeletal discomfort [None]
  - Back pain [None]
  - Constipation [None]
  - Pain in extremity [None]
  - Prostatic specific antigen increased [None]
  - Haemoglobin decreased [None]

NARRATIVE: CASE EVENT DATE: 20210610
